FAERS Safety Report 4863023-4 (Version None)
Quarter: 2005Q4

REPORT INFORMATION
  Report Type: 
  Country: None (occurrence: None)
  Receive Date: 20051221
  Receipt Date: 20051214
  Transmission Date: 20060501
  Serious: Yes (Hospitalization)
  Sender: FDA-Public Use
  Company Number: JP-MERCK-0512USA02514

PATIENT
  Sex: Female

DRUGS (7)
  1. MAXALT [Suspect]
     Indication: MIGRAINE
     Route: 048
     Dates: start: 20051024, end: 20051102
  2. ATELEC [Concomitant]
     Route: 065
  3. BLOPRESS [Concomitant]
     Route: 065
  4. LOMERIZINE HYDROCHLORIDE [Concomitant]
     Route: 065
  5. CARDENALIN [Concomitant]
     Route: 065
  6. TORSEMIDE [Concomitant]
     Route: 065
  7. BASEN [Concomitant]
     Route: 065

REACTIONS (3)
  - DIZZINESS [None]
  - FRACTURED COCCYX [None]
  - SYNCOPE [None]
